FAERS Safety Report 10094180 (Version 15)
Quarter: 2018Q2

REPORT INFORMATION
  Report Type: Report from Study
  Country: CA (occurrence: CA)
  Receive Date: 20140422
  Receipt Date: 20180407
  Transmission Date: 20180711
  Serious: Yes (Life-Threatening, Hospitalization, Other)
  Sender: FDA-Public Use
  Company Number: CA-ROCHE-1198539

PATIENT
  Age: 28 Year
  Sex: Female
  Weight: 60 kg

DRUGS (16)
  1. METHOTREXATE. [Suspect]
     Active Substance: METHOTREXATE
     Indication: PRODUCT USED FOR UNKNOWN INDICATION
     Route: 065
  2. IVIG [Concomitant]
     Active Substance: HUMAN IMMUNOGLOBULIN G
  3. ACTEMRA [Suspect]
     Active Substance: TOCILIZUMAB
     Route: 042
     Dates: start: 20110602
  4. PREDNISONE. [Concomitant]
     Active Substance: PREDNISONE
  5. ANAKINRA [Concomitant]
     Active Substance: ANAKINRA
  6. PERCOCET [Concomitant]
     Active Substance: ACETAMINOPHEN\OXYCODONE HYDROCHLORIDE
  7. RITUXAN [Suspect]
     Active Substance: RITUXIMAB
     Indication: JUVENILE IDIOPATHIC ARTHRITIS
     Dosage: MOST RECENT DOSE OF INFUSION WAS RECEIVED ON 02/MAY/2013
     Route: 042
     Dates: start: 20130418, end: 20130502
  8. TYLENOL [Concomitant]
     Active Substance: ACETAMINOPHEN
  9. FOLIC ACID. [Concomitant]
     Active Substance: FOLIC ACID
  10. OMEPRAZOLE. [Concomitant]
     Active Substance: OMEPRAZOLE
  11. ACTEMRA [Suspect]
     Active Substance: TOCILIZUMAB
     Route: 042
     Dates: start: 20110630
  12. NAPROXEN. [Concomitant]
     Active Substance: NAPROXEN
  13. ACTEMRA [Suspect]
     Active Substance: TOCILIZUMAB
     Route: 042
     Dates: start: 20150305
  14. ACTEMRA [Suspect]
     Active Substance: TOCILIZUMAB
     Indication: JUVENILE IDIOPATHIC ARTHRITIS
     Dosage: 8 MG/KG
     Route: 042
     Dates: start: 20110112
  15. FOSAMAX [Concomitant]
     Active Substance: ALENDRONATE SODIUM
  16. VALACYCLOVIR [Concomitant]
     Active Substance: VALACYCLOVIR HYDROCHLORIDE
     Dosage: 2 WEEK COURSE
     Route: 065
     Dates: start: 20141013

REACTIONS (15)
  - Nasopharyngitis [Recovering/Resolving]
  - Organ failure [Unknown]
  - Hypotension [Unknown]
  - Heart rate increased [Unknown]
  - Fall [Unknown]
  - Drug ineffective [Unknown]
  - Knee arthroplasty [Unknown]
  - Weight decreased [Unknown]
  - Arthropathy [Recovered/Resolved]
  - Arthritis infective [Not Recovered/Not Resolved]
  - Histiocytosis haematophagic [Recovering/Resolving]
  - Herpes zoster [Not Recovered/Not Resolved]
  - Weight increased [Not Recovered/Not Resolved]
  - Infection [Unknown]
  - Sepsis syndrome [Recovering/Resolving]

NARRATIVE: CASE EVENT DATE: 20130222
